FAERS Safety Report 10149566 (Version 2)
Quarter: 2014Q2

REPORT INFORMATION
  Report Type: Spontaneous
  Country: FI (occurrence: FI)
  Receive Date: 20140502
  Receipt Date: 20140502
  Transmission Date: 20141212
  Serious: Yes (Disabling, Other)
  Sender: FDA-Public Use
  Company Number: FI-PFIZER INC-2014103129

PATIENT
  Age: 48 Year
  Sex: Female
  Weight: 98 kg

DRUGS (10)
  1. LYRICA [Suspect]
     Indication: BACK PAIN
     Dosage: 75 MG, 2X/DAY
     Dates: start: 2012, end: 20140310
  2. LYRICA [Suspect]
     Indication: NEURALGIA
  3. PROPRAL [Concomitant]
     Indication: PALPITATIONS
     Dosage: 40 MG, 0.5-1X3 WHEN NEEDED
  4. OPAMOX [Concomitant]
     Indication: POLYMENORRHOEA
  5. IMOVANE [Concomitant]
  6. SOMAC [Concomitant]
     Dosage: 40 MG, 1X/DAY WHEN NEEDED
     Dates: start: 20130820
  7. MELATONIN [Concomitant]
     Dosage: 5 MG, AS NEEDED
  8. KETIPINOR [Concomitant]
     Dosage: 25 MG, 1-4 TABLETS IN THE EVENING
     Dates: end: 20140310
  9. LEVOZIN [Concomitant]
     Dosage: 25 MG 1-2 TABLET IN THE EVENING
  10. PARACETAMOL [Concomitant]

REACTIONS (3)
  - Suicidal ideation [Recovered/Resolved]
  - Crying [Unknown]
  - Lung infection [Unknown]
